FAERS Safety Report 6651087-7 (Version None)
Quarter: 2010Q1

REPORT INFORMATION
  Report Type: 
  Country: None (occurrence: None)
  Receive Date: 20100325
  Receipt Date: 20100315
  Transmission Date: 20100710
  Serious: Yes (Death)
  Sender: FDA-Public Use
  Company Number: DE-PFIZER INC-2010032645

PATIENT
  Age: 84 Year
  Sex: Male
  Weight: 71 kg

DRUGS (3)
  1. NORVASC [Suspect]
     Indication: PULMONARY ARTERIAL HYPERTENSION
     Dosage: 5 MG, 1X/DAY
     Route: 048
     Dates: start: 20091201
  2. CLOPIDOGREL SULFATE [Suspect]
     Indication: CORONARY ANGIOPLASTY
     Dosage: 75 MG, 1X/DAY
     Route: 048
     Dates: start: 20091029
  3. ASPIRIN [Suspect]
     Indication: CORONARY ARTERY DISEASE
     Dosage: 1 DF, 1X/DAY
     Route: 048

REACTIONS (2)
  - CEREBRAL HAEMORRHAGE [None]
  - HYPOXIC ENCEPHALOPATHY [None]
